FAERS Safety Report 6312466-0 (Version None)
Quarter: 2009Q3

REPORT INFORMATION
  Report Type: 
  Country: None (occurrence: None)
  Receive Date: 20090813
  Receipt Date: 20090731
  Transmission Date: 20100115
  Serious: Yes (Other)
  Sender: FDA-Public Use
  Company Number: DSM-2009-01067

PATIENT
  Sex: Female

DRUGS (2)
  1. OLMESARTAN MEDOXOMIL [Suspect]
     Indication: DRUG USE FOR UNKNOWN INDICATION
  2. DIOVAN [Suspect]
     Indication: HYPERTENSION
     Dates: start: 20010501, end: 20090201

REACTIONS (4)
  - BLOOD PRESSURE DECREASED [None]
  - PAIN IN EXTREMITY [None]
  - POLYP COLORECTAL [None]
  - RECTOSIGMOID CANCER [None]
